FAERS Safety Report 5067903-9 (Version None)
Quarter: 2006Q3

REPORT INFORMATION
  Report Type: 
  Country: None (occurrence: None)
  Receive Date: 20060802
  Receipt Date: 20060714
  Transmission Date: 20061208
  Serious: Yes (Other)
  Sender: FDA-Public Use
  Company Number: 2006PK01538

PATIENT
  Age: 20735 Day
  Sex: Female

DRUGS (3)
  1. ARIMIDEX [Suspect]
     Indication: BREAST CANCER
     Route: 048
     Dates: start: 20050101
  2. CORTISONE ACETATE [Interacting]
     Indication: INTESTINAL POLYP
     Route: 048
     Dates: start: 20060704, end: 20060714
  3. EUTHYROX [Concomitant]
     Indication: HYPOTHYROIDISM
     Route: 048

REACTIONS (2)
  - DRUG INTERACTION [None]
  - VENOUS THROMBOSIS LIMB [None]
